FAERS Safety Report 7725156-4 (Version None)
Quarter: 2011Q3

REPORT INFORMATION
  Report Type: 
  Country: None (occurrence: None)
  Receive Date: 20110901
  Receipt Date: 20110831
  Transmission Date: 20111222
  Serious: Yes (Hospitalization)
  Sender: FDA-Public Use
  Company Number: DE-MERCK-1108DEU00094

PATIENT
  Age: 58 Year
  Sex: Male

DRUGS (2)
  1. FOSAMAX [Suspect]
     Route: 048
     Dates: start: 20110501, end: 20110701
  2. FOSAMAX [Suspect]
     Indication: OSTEOPOROSIS
     Route: 048
     Dates: start: 20040101, end: 20080101

REACTIONS (3)
  - ARTHROPATHY [None]
  - CHONDROMALACIA [None]
  - OSTEOARTHRITIS [None]
